FAERS Safety Report 5350496-6 (Version None)
Quarter: 2007Q2

REPORT INFORMATION
  Report Type: 
  Country: None (occurrence: None)
  Receive Date: 20070606
  Receipt Date: 20070606
  Transmission Date: 20071010
  Serious: Yes (Hospitalization)
  Sender: FDA-Public Use
  Company Number: None

PATIENT
  Sex: Female
  Weight: 51.9 kg

DRUGS (30)
  1. CETUXIMAB [Suspect]
     Indication: BREAST CANCER METASTATIC
     Dosage: 400 MG/M2 IV BOLUS AT THE START IV 040
     Route: 042
     Dates: start: 20070530
  2. CARBOPLATIN [Suspect]
     Indication: BREAST CANCER METASTATIC
     Dosage: AUC-2 IV BOLUS
     Route: 040
     Dates: start: 20070530
  3. BISACODYL [Concomitant]
  4. ALBUTEROL [Concomitant]
  5. AZELASTINE HCL [Concomitant]
  6. BISACODYL [Concomitant]
  7. DOCUSATE SODIUM [Concomitant]
  8. FEXOFENADINE HCL [Concomitant]
  9. GABAPENTIN [Concomitant]
  10. LACTULOSE [Concomitant]
  11. LATANOPROST [Concomitant]
  12. LORAZEPAM [Concomitant]
  13. METHYLPHENIDATE HCL [Concomitant]
  14. METOCLOPRAMIDE HCL [Concomitant]
  15. MORPHINE [Concomitant]
  16. OMEPRAZOLE [Concomitant]
  17. OXYCODONE HCL [Concomitant]
  18. SENNOSIDES [Concomitant]
  19. LORAZEPAM [Concomitant]
  20. BACLOFEN [Concomitant]
  21. DEXAMETHASONE 0.5MG TAB [Concomitant]
  22. PIMECROLIMUS [Concomitant]
  23. FLUTICASONE PROPIONATE [Concomitant]
  24. KCL SLOW RELEASE [Concomitant]
  25. LACTULOSE [Concomitant]
  26. ATORVASTATIN [Concomitant]
  27. POLYETHYLENE GLYCOL [Concomitant]
  28. MORPHINE [Concomitant]
  29. NYSTATIN [Concomitant]
  30. MIRTAZAPINE [Concomitant]

REACTIONS (8)
  - BLOOD MAGNESIUM DECREASED [None]
  - BLOOD POTASSIUM DECREASED [None]
  - CONFUSIONAL STATE [None]
  - ELECTROLYTE IMBALANCE [None]
  - MENTAL STATUS CHANGES [None]
  - METASTASES TO CENTRAL NERVOUS SYSTEM [None]
  - OVERDOSE [None]
  - TREMOR [None]
